FAERS Safety Report 7561941-X (Version None)
Quarter: 2011Q2

REPORT INFORMATION
  Report Type: 
  Country: None (occurrence: None)
  Receive Date: 20110621
  Receipt Date: 20110616
  Transmission Date: 20111010
  Serious: Yes (Life-Threatening, Hospitalization)
  Sender: FDA-Public Use
  Company Number: AU-MERCK-1106USA02019

PATIENT
  Age: 68 Year
  Sex: Male
  Weight: 75 kg

DRUGS (4)
  1. METFORMIN HCL [Suspect]
     Route: 065
     Dates: end: 20110430
  2. ZOCOR [Suspect]
     Route: 048
  3. CANDESARTAN CILEXETIL [Suspect]
     Route: 065
  4. GLICLAZIDE [Suspect]
     Route: 065

REACTIONS (1)
  - LACTIC ACIDOSIS [None]
